FAERS Safety Report 20836762 (Version 1)
Quarter: 2022Q2

REPORT INFORMATION
  Report Type: Spontaneous
  Country: US (occurrence: US)
  Receive Date: 20220517
  Receipt Date: 20220517
  Transmission Date: 20220721
  Serious: No
  Sender: FDA-Public Use
  Company Number: US-ELI_LILLY_AND_COMPANY-US202205000631

PATIENT
  Sex: Female

DRUGS (3)
  1. VERZENIO [Suspect]
     Active Substance: ABEMACICLIB
     Indication: Breast cancer female
     Dosage: 150 MG, UNKNOWN
     Route: 065
     Dates: end: 20220314
  2. VERZENIO [Suspect]
     Active Substance: ABEMACICLIB
     Indication: Lymphoma
  3. VERZENIO [Suspect]
     Active Substance: ABEMACICLIB
     Indication: Bone cancer

REACTIONS (1)
  - Drug ineffective [Unknown]
